FAERS Safety Report 15651776 (Version 1)
Quarter: 2018Q4

REPORT INFORMATION
  Report Type: Spontaneous
  Country: BY (occurrence: BY)
  Receive Date: 20181123
  Receipt Date: 20181123
  Transmission Date: 20190205
  Serious: Yes (Life-Threatening)
  Sender: FDA-Public Use
  Company Number: BY-TEVA-2018-BY-851113

PATIENT
  Age: 59 Year
  Sex: Male

DRUGS (16)
  1. CARDIOMAGNYL [Concomitant]
     Active Substance: ASPIRIN\MAGNESIUM HYDROXIDE
     Dosage: 75 MILLIGRAM DAILY;
     Route: 048
     Dates: start: 20180109, end: 20180111
  2. LOPIREL [Suspect]
     Active Substance: CLOPIDOGREL BISULFATE
     Dosage: 75 MILLIGRAM DAILY;
     Route: 048
     Dates: start: 20180109, end: 20180111
  3. CEREPRO [Concomitant]
     Dosage: 1200 MILLIGRAM DAILY;
     Route: 048
     Dates: start: 20180108
  4. CEREPRO [Concomitant]
     Dosage: 75 MILLIGRAM DAILY;
     Route: 048
     Dates: start: 20180109, end: 20180111
  5. CARDIOMAGNYL [Concomitant]
     Active Substance: ASPIRIN\MAGNESIUM HYDROXIDE
     Indication: ANTIPLATELET THERAPY
     Dosage: 75 MILLIGRAM DAILY;
     Route: 048
     Dates: start: 20180112
  6. GLYCINE. [Concomitant]
     Active Substance: GLYCINE
     Dosage: 75 MILLIGRAM DAILY;
     Route: 048
     Dates: start: 20180109, end: 20180111
  7. GLYCINE. [Concomitant]
     Active Substance: GLYCINE
     Dosage: 600 MILLIGRAM DAILY;
     Route: 048
     Dates: start: 20180108
  8. LOPIREL [Suspect]
     Active Substance: CLOPIDOGREL BISULFATE
     Indication: ANTIPLATELET THERAPY
     Dosage: 300 MILLIGRAM DAILY;
     Route: 048
     Dates: start: 20180108, end: 20180108
  9. ARIFON RETARD [Concomitant]
     Dosage: 1.5 MILLIGRAM DAILY;
     Route: 048
     Dates: start: 20180108
  10. ARIFON RETARD [Concomitant]
     Dosage: 75 MILLIGRAM DAILY;
     Route: 048
     Dates: start: 20180109, end: 20180111
  11. EXFORGE [Concomitant]
     Active Substance: AMLODIPINE BESYLATE\VALSARTAN
     Indication: ANTIPLATELET THERAPY
     Dosage: 320 MILLIGRAM DAILY;
     Route: 048
     Dates: start: 20180108
  12. EXFORGE [Concomitant]
     Active Substance: AMLODIPINE BESYLATE\VALSARTAN
     Dosage: 75 MILLIGRAM DAILY;
     Route: 048
     Dates: start: 20180109, end: 20180111
  13. NEBILET [Concomitant]
     Active Substance: NEBIVOLOL
     Dosage: 2.5 MILLIGRAM DAILY;
     Route: 048
     Dates: start: 20180108
  14. NEBILET [Concomitant]
     Active Substance: NEBIVOLOL
     Dosage: 75 MILLIGRAM DAILY;
     Route: 048
     Dates: start: 20180109, end: 20180111
  15. ROSUVASTATIN. [Concomitant]
     Active Substance: ROSUVASTATIN
     Dosage: 20 MILLIGRAM DAILY;
     Route: 048
     Dates: start: 20180108
  16. ROSUVASTATIN. [Concomitant]
     Active Substance: ROSUVASTATIN
     Dosage: 75 MILLIGRAM DAILY;
     Route: 048
     Dates: start: 20180109, end: 20180111

REACTIONS (1)
  - Drug ineffective [Recovering/Resolving]

NARRATIVE: CASE EVENT DATE: 20180108
